FAERS Safety Report 16523051 (Version 1)
Quarter: 2019Q3

REPORT INFORMATION
  Report Type: Report from Study
  Country: US (occurrence: US)
  Receive Date: 20190703
  Receipt Date: 20190703
  Transmission Date: 20191004
  Serious: Yes (Other)
  Sender: FDA-Public Use
  Company Number: US-AMGEN INC.-USASL2019104614

PATIENT

DRUGS (2)
  1. AIMOVIG [Suspect]
     Active Substance: ERENUMAB-AOOE
     Indication: MIGRAINE
     Dosage: 70 MILLIGRAM
     Route: 065
  2. AIMOVIG [Suspect]
     Active Substance: ERENUMAB-AOOE
     Dosage: 140 MILLIGRAM, QMO
     Route: 065
     Dates: start: 2019

REACTIONS (6)
  - Influenza like illness [Recovering/Resolving]
  - Therapeutic product effect incomplete [Unknown]
  - Quality of life decreased [Not Recovered/Not Resolved]
  - Narcolepsy [Recovering/Resolving]
  - Pain [Not Recovered/Not Resolved]
  - Somnolence [Recovering/Resolving]
